FAERS Safety Report 21707347 (Version 2)
Quarter: 2022Q4

REPORT INFORMATION
  Report Type: Spontaneous
  Country: US (occurrence: US)
  Receive Date: 20221209
  Receipt Date: 20221213
  Transmission Date: 20230112
  Serious: Yes (Life-Threatening, Hospitalization)
  Sender: FDA-Public Use
  Company Number: US-MLMSERVICE-20221125-3942491-1

PATIENT
  Sex: Male

DRUGS (7)
  1. DEXAMETHASONE [Suspect]
     Active Substance: DEXAMETHASONE
     Indication: Prophylaxis
     Dosage: RECEIVED 2 DOSES, GIVEN 12 HOURS APART ON DOL 31
     Route: 065
  2. DEXAMETHASONE [Suspect]
     Active Substance: DEXAMETHASONE
     Indication: Extubation
     Dosage: RECEIVED TWO DOSE IN A DAY, OF 0.5 MG/KG FOLLOWED BY THE SECOND DOSE 12 HOURS LATER
     Route: 065
  3. DEXAMETHASONE [Suspect]
     Active Substance: DEXAMETHASONE
     Dosage: RECEIVED TWO DOSE IN A DAY, FIRST DOSE FOLLOWED BY THE OF 0.25 MG/KG 12 HOURS LATER
     Route: 065
  4. CAFFEINE [Concomitant]
     Active Substance: CAFFEINE
     Indication: Product used for unknown indication
  5. INDOMETHACIN [Concomitant]
     Active Substance: INDOMETHACIN
     Indication: Patent ductus arteriosus
     Dosage: 0.2 MG/KG/DOSE X 3 DOSES EVERY 12 HOURS
     Route: 065
  6. GENTAMICIN [Concomitant]
     Active Substance: GENTAMICIN
     Indication: Evidence based treatment
  7. NAFCILLIN [Concomitant]
     Active Substance: NAFCILLIN SODIUM
     Indication: Evidence based treatment

REACTIONS (2)
  - Cardiogenic shock [Recovered/Resolved]
  - Hypertrophic cardiomyopathy [Recovered/Resolved]
